FAERS Safety Report 12772138 (Version 1)
Quarter: 2016Q3

REPORT INFORMATION
  Report Type: Spontaneous
  Country: US (occurrence: US)
  Receive Date: 20160922
  Receipt Date: 20160922
  Transmission Date: 20161109
  Serious: No
  Sender: FDA-Public Use
  Company Number: US-GE HEALTHCARE MEDICAL DIAGNOSTICS-PET1-PR-1608S-0013

PATIENT

DRUGS (2)
  1. FLUTEMETAMOL [F18] INJECTION [Suspect]
     Active Substance: FLUTEMETAMOL F-18
     Indication: DIAGNOSTIC PROCEDURE
  2. FLUTEMETAMOL [F18] INJECTION [Suspect]
     Active Substance: FLUTEMETAMOL F-18
     Indication: PRODUCT USED FOR UNKNOWN INDICATION
     Dosage: DOSE NOT REPORTED
     Route: 065

REACTIONS (2)
  - No adverse event [Recovered/Resolved]
  - Radioisotope scan abnormal [Unknown]
